FAERS Safety Report 21001502 (Version 1)
Quarter: 2022Q2

REPORT INFORMATION
  Report Type: Spontaneous
  Country: US (occurrence: US)
  Receive Date: 20220624
  Receipt Date: 20220624
  Transmission Date: 20220721
  Serious: No
  Sender: FDA-Public Use
  Company Number: US-BioHaven Pharmaceuticals-2022BHV000852

PATIENT
  Age: 83 Year
  Sex: Female
  Weight: 81.720 kg

DRUGS (2)
  1. NURTEC ODT [Suspect]
     Active Substance: RIMEGEPANT SULFATE
     Indication: Migraine
     Dosage: PATIENT TOOK ONE DOSE, ONE TIME. PATIENT HAD TWO SAMPLE PACKS FROM HER DOCTOR AND ONLY TOOK ONE DOSE
     Route: 048
     Dates: start: 20220317
  2. NURTEC ODT [Suspect]
     Active Substance: RIMEGEPANT SULFATE
     Dosage: PATIENT TOOK ONE DOSE, ONE TIME ON 21-MAR-2022. PATIENT HAD TWO SAMPLE PACKS FROM HER DOCTOR AND ONL
     Route: 060
     Dates: start: 20220321

REACTIONS (1)
  - Drug ineffective [Unknown]
